FAERS Safety Report 9081234 (Version 3)
Quarter: 2013Q1

REPORT INFORMATION
  Report Type: Spontaneous
  Country: JP (occurrence: JP)
  Receive Date: 20130130
  Receipt Date: 20130226
  Transmission Date: 20140127
  Serious: Yes (Hospitalization)
  Sender: FDA-Public Use
  Company Number: JP-OTSUKA-JP-2013-10140

PATIENT
  Age: 87 Year
  Sex: Male

DRUGS (2)
  1. SAMSCA [Suspect]
     Indication: CARDIAC FAILURE CONGESTIVE
     Dosage: UNK
     Route: 048
     Dates: end: 20130115
  2. MAINTATE [Concomitant]
     Dosage: UNK
     Route: 048
     Dates: end: 20130115

REACTIONS (1)
  - Hepatic function abnormal [Unknown]
